FAERS Safety Report 6035022-0 (Version None)
Quarter: 2009Q1

REPORT INFORMATION
  Report Type: 
  Country: None (occurrence: None)
  Receive Date: 20090112
  Receipt Date: 20090106
  Transmission Date: 20090719
  Serious: Yes (Death, Hospitalization)
  Sender: FDA-Public Use
  Company Number: GB-TEVA-183420ISR

PATIENT
  Age: 91 Year
  Sex: Female

DRUGS (1)
  1. TRIMETHOPRIM [Suspect]
     Indication: URINARY TRACT INFECTION
     Route: 048
     Dates: start: 20081103, end: 20081110

REACTIONS (3)
  - PNEUMONIA [None]
  - RASH [None]
  - TUBULOINTERSTITIAL NEPHRITIS [None]
